FAERS Safety Report 16809116 (Version 1)
Quarter: 2019Q4

REPORT INFORMATION
  Report Type: Spontaneous
  Country: US (occurrence: US)
  Receive Date: 20190914
  Receipt Date: 20190914
  Transmission Date: 20200122
  Serious: Yes (Disabling, Other)
  Sender: FDA-Public Use
  Company Number: None

PATIENT
  Age: 65 Year
  Sex: Female
  Weight: 74.25 kg

DRUGS (15)
  1. CETIRIZINE HYDROCHLORIDE. [Concomitant]
     Active Substance: CETIRIZINE HYDROCHLORIDE
  2. CBD OIL [Concomitant]
     Active Substance: CANNABIDIOL\HERBALS
  3. NAPROSYN [Concomitant]
     Active Substance: NAPROXEN
  4. AML [Concomitant]
  5. PROAIR HFA [Concomitant]
     Active Substance: ALBUTEROL SULFATE
  6. EZETIMIBE. [Concomitant]
     Active Substance: EZETIMIBE
  7. OMEPRAZOLE. [Concomitant]
     Active Substance: OMEPRAZOLE
  8. CBD [Concomitant]
     Active Substance: CANNABIDIOL
  9. RANITIDINE 150 MG ONE TABLET TWICE DAILY [Suspect]
     Active Substance: RANITIDINE
     Indication: GASTROOESOPHAGEAL REFLUX DISEASE
     Route: 048
  10. PREGABALIN. [Concomitant]
     Active Substance: PREGABALIN
  11. PAROXETINE. [Concomitant]
     Active Substance: PAROXETINE
  12. LORATADINE. [Concomitant]
     Active Substance: LORATADINE
  13. FLUTICASONE PROPIONATE. [Concomitant]
     Active Substance: FLUTICASONE PROPIONATE
  14. CARDEDILOL [Concomitant]
     Active Substance: CARVEDILOL
  15. HYDROCHLOROTHIAZIDE. [Concomitant]
     Active Substance: HYDROCHLOROTHIAZIDE

REACTIONS (1)
  - Colon cancer [None]

NARRATIVE: CASE EVENT DATE: 20190524
